FAERS Safety Report 7773249-8 (Version None)
Quarter: 2011Q3

REPORT INFORMATION
  Report Type: 
  Country: None (occurrence: None)
  Receive Date: 20110922
  Receipt Date: 20110831
  Transmission Date: 20111222
  Serious: Yes (Death, Other)
  Sender: FDA-Public Use
  Company Number: US-BAXTER-2009BH016671

PATIENT
  Age: 46 Year
  Sex: Male

DRUGS (92)
  1. HEPARIN SODIUM INJECTION [Suspect]
     Route: 042
     Dates: start: 20071011, end: 20071027
  2. HEPARIN SODIUM INJECTION [Suspect]
     Route: 040
     Dates: start: 20071013, end: 20071013
  3. HEPARIN SODIUM INJECTION [Suspect]
     Route: 040
     Dates: start: 20071014, end: 20071014
  4. HEPARIN SODIUM INJECTION [Suspect]
     Route: 040
     Dates: start: 20071014, end: 20071014
  5. HEPARIN SODIUM 5,000 UNITS IN DEXTROSE 5% [Suspect]
     Indication: SPLENIC VEIN THROMBOSIS
     Route: 041
     Dates: start: 20071004, end: 20071005
  6. HEPARIN SODIUM 5,000 UNITS IN DEXTROSE 5% [Suspect]
     Route: 041
     Dates: start: 20071007, end: 20071007
  7. HEPARIN SODIUM 5,000 UNITS IN DEXTROSE 5% [Suspect]
     Route: 041
     Dates: start: 20071008, end: 20071008
  8. HEPARIN SODIUM 5,000 UNITS IN DEXTROSE 5% [Suspect]
     Route: 041
     Dates: start: 20071012, end: 20071012
  9. HEPARIN SODIUM 5,000 UNITS IN DEXTROSE 5% [Suspect]
     Route: 041
     Dates: start: 20071013, end: 20071014
  10. HEPARIN SODIUM 5,000 UNITS IN DEXTROSE 5% [Suspect]
     Route: 041
     Dates: start: 20071013, end: 20071014
  11. HEPARIN SODIUM 5,000 UNITS IN DEXTROSE 5% [Suspect]
     Route: 041
     Dates: start: 20071014, end: 20071014
  12. HEPARIN SODIUM 5,000 UNITS IN DEXTROSE 5% [Suspect]
     Route: 041
     Dates: start: 20071014, end: 20071014
  13. MEPERIDINE HCL [Concomitant]
     Indication: PRODUCT USED FOR UNKNOWN INDICATION
     Route: 065
  14. HEPARIN SODIUM INJECTION [Suspect]
     Route: 065
     Dates: start: 20070901, end: 20070901
  15. HEPARIN SODIUM INJECTION [Suspect]
     Route: 065
     Dates: start: 20070901, end: 20070901
  16. HEPARIN SODIUM INJECTION [Suspect]
     Route: 065
     Dates: start: 20070901, end: 20070901
  17. HEPARIN SODIUM INJECTION [Suspect]
     Route: 040
     Dates: start: 20071013, end: 20071013
  18. HEPARIN SODIUM INJECTION [Suspect]
     Route: 040
     Dates: start: 20071014, end: 20071014
  19. HEPARIN SODIUM INJECTION [Suspect]
     Route: 040
     Dates: start: 20071014, end: 20071014
  20. HEPARIN SODIUM 5,000 UNITS IN DEXTROSE 5% [Suspect]
     Route: 041
     Dates: start: 20071009, end: 20071009
  21. HEPARIN SODIUM INJECTION [Suspect]
     Indication: CENTRAL VENOUS CATHETERISATION
     Route: 042
     Dates: start: 20070921
  22. ALBUMIN (HUMAN) [Concomitant]
     Indication: PRODUCT USED FOR UNKNOWN INDICATION
     Route: 065
  23. NYSTATIN [Concomitant]
     Indication: PRODUCT USED FOR UNKNOWN INDICATION
     Route: 061
  24. PHENERGAN HCL [Concomitant]
     Indication: PRODUCT USED FOR UNKNOWN INDICATION
     Route: 065
  25. AMBIEN [Concomitant]
     Indication: PRODUCT USED FOR UNKNOWN INDICATION
     Route: 065
  26. ZANTAC [Concomitant]
     Indication: PRODUCT USED FOR UNKNOWN INDICATION
     Route: 065
  27. HEPARIN SODIUM INJECTION [Suspect]
     Indication: INTRAVENOUS CATHETER MANAGEMENT
     Route: 040
     Dates: start: 20071011, end: 20071011
  28. HEPARIN SODIUM INJECTION [Suspect]
     Route: 040
     Dates: start: 20071013, end: 20071013
  29. HEPARIN SODIUM INJECTION [Suspect]
     Route: 040
     Dates: start: 20071014, end: 20071014
  30. HEPARIN SODIUM 5,000 UNITS IN DEXTROSE 5% [Suspect]
     Indication: MESENTERIC VEIN THROMBOSIS
     Route: 041
     Dates: start: 20071004, end: 20071005
  31. HEPARIN SODIUM 5,000 UNITS IN DEXTROSE 5% [Suspect]
     Route: 041
     Dates: start: 20071007, end: 20071008
  32. HEPARIN SODIUM 5,000 UNITS IN DEXTROSE 5% [Suspect]
     Route: 041
     Dates: start: 20071008, end: 20071008
  33. HEPARIN SODIUM 5,000 UNITS IN DEXTROSE 5% [Suspect]
     Route: 041
     Dates: start: 20071014, end: 20071014
  34. HEPARIN SODIUM 5,000 UNITS IN DEXTROSE 5% [Suspect]
     Route: 041
     Dates: start: 20071014, end: 20071014
  35. HEPARIN SODIUM 1,000 UNITS AND SODIUM CHLORIDE 0.9% [Suspect]
     Indication: PRODUCT USED FOR UNKNOWN INDICATION
     Route: 065
  36. THIAMINE HCL [Concomitant]
     Indication: PRODUCT USED FOR UNKNOWN INDICATION
     Route: 065
  37. HEPARIN SODIUM INJECTION [Suspect]
     Route: 042
     Dates: start: 20071011, end: 20071027
  38. HEPARIN SODIUM INJECTION [Suspect]
     Route: 040
     Dates: start: 20071011, end: 20071014
  39. HEPARIN SODIUM 5,000 UNITS IN DEXTROSE 5% [Suspect]
     Route: 041
     Dates: start: 20071006, end: 20071006
  40. HEPARIN SODIUM 5,000 UNITS IN DEXTROSE 5% [Suspect]
     Route: 041
     Dates: start: 20071006, end: 20071007
  41. HEPARIN SODIUM 5,000 UNITS IN DEXTROSE 5% [Suspect]
     Route: 041
     Dates: start: 20071007, end: 20071007
  42. HEPARIN SODIUM 5,000 UNITS IN DEXTROSE 5% [Suspect]
     Route: 041
     Dates: start: 20071008, end: 20071008
  43. HEPARIN SODIUM 5,000 UNITS IN DEXTROSE 5% [Suspect]
     Route: 041
     Dates: start: 20071011, end: 20071012
  44. HEPARIN SODIUM 5,000 UNITS IN DEXTROSE 5% [Suspect]
     Route: 041
     Dates: start: 20071012, end: 20071012
  45. HEPARIN SODIUM 5,000 UNITS IN DEXTROSE 5% [Suspect]
     Route: 041
     Dates: start: 20071013, end: 20071013
  46. HEPARIN SODIUM 5,000 UNITS IN DEXTROSE 5% [Suspect]
     Route: 041
     Dates: start: 20071014, end: 20071016
  47. TYLENOL-500 [Concomitant]
     Indication: PRODUCT USED FOR UNKNOWN INDICATION
     Route: 065
  48. HEPARIN SODIUM 5,000 UNITS IN DEXTROSE 5% [Suspect]
     Route: 041
     Dates: start: 20071006, end: 20071006
  49. HEPARIN SODIUM 5,000 UNITS IN DEXTROSE 5% [Suspect]
     Route: 041
     Dates: start: 20071006, end: 20071007
  50. HEPARIN SODIUM 5,000 UNITS IN DEXTROSE 5% [Suspect]
     Route: 041
     Dates: start: 20071007, end: 20071007
  51. HEPARIN SODIUM 5,000 UNITS IN DEXTROSE 5% [Suspect]
     Route: 041
     Dates: start: 20071007, end: 20071008
  52. HEPARIN SODIUM 5,000 UNITS IN DEXTROSE 5% [Suspect]
     Route: 041
     Dates: start: 20071008, end: 20071008
  53. HEPARIN SODIUM 5,000 UNITS IN DEXTROSE 5% [Suspect]
     Route: 041
     Dates: start: 20071009, end: 20071009
  54. HEPARIN SODIUM 5,000 UNITS IN DEXTROSE 5% [Suspect]
     Route: 041
     Dates: start: 20071010, end: 20071011
  55. HEPARIN SODIUM 5,000 UNITS IN DEXTROSE 5% [Suspect]
     Route: 041
     Dates: start: 20071010, end: 20071011
  56. HEPARIN SODIUM 5,000 UNITS IN DEXTROSE 5% [Suspect]
     Route: 041
     Dates: start: 20071011, end: 20071012
  57. HEPARIN SODIUM 5,000 UNITS IN DEXTROSE 5% [Suspect]
     Route: 041
     Dates: start: 20071013, end: 20071013
  58. HEPARIN SODIUM 10,000 UNITS IN SODIUM CHLORIDE 0.45% [Suspect]
     Indication: PRODUCT USED FOR UNKNOWN INDICATION
     Route: 065
  59. FLAGYL [Concomitant]
     Indication: PRODUCT USED FOR UNKNOWN INDICATION
     Route: 065
  60. OMNICEF [Concomitant]
     Indication: PRODUCT USED FOR UNKNOWN INDICATION
     Route: 065
  61. LORTAB [Concomitant]
     Indication: PRODUCT USED FOR UNKNOWN INDICATION
     Route: 048
  62. HEPARIN SODIUM INJECTION [Suspect]
     Route: 040
     Dates: start: 20071014, end: 20071014
  63. HEPARIN SODIUM 5,000 UNITS IN DEXTROSE 5% [Suspect]
     Route: 041
     Dates: start: 20071008, end: 20071008
  64. HEPARIN SODIUM 5,000 UNITS IN DEXTROSE 5% [Suspect]
     Route: 041
     Dates: start: 20071009, end: 20071010
  65. HEPARIN SODIUM 5,000 UNITS IN DEXTROSE 5% [Suspect]
     Route: 041
     Dates: start: 20071014, end: 20071014
  66. HEPARIN SODIUM 5,000 UNITS IN DEXTROSE 5% [Suspect]
     Route: 041
     Dates: start: 20071014, end: 20071014
  67. HEPARIN SODIUM 5,000 UNITS IN DEXTROSE 5% [Suspect]
     Route: 041
     Dates: start: 20071014, end: 20071016
  68. HEPARIN SODIUM INJECTION [Suspect]
     Indication: SPLENIC VEIN THROMBOSIS
     Route: 040
     Dates: start: 20071011, end: 20071011
  69. HEPARIN SODIUM INJECTION [Suspect]
     Route: 040
     Dates: start: 20071012, end: 20071012
  70. HEPARIN SODIUM INJECTION [Suspect]
     Route: 040
     Dates: start: 20071011, end: 20071014
  71. HEPARIN SODIUM INJECTION [Suspect]
     Route: 040
     Dates: start: 20071011, end: 20071014
  72. HEPARIN SODIUM INJECTION [Suspect]
     Route: 042
     Dates: start: 20071011, end: 20071027
  73. HEPARIN SODIUM INJECTION [Suspect]
     Route: 040
     Dates: start: 20071011, end: 20071014
  74. HEPARIN SODIUM INJECTION [Suspect]
     Route: 040
     Dates: start: 20071013, end: 20071013
  75. HEPARIN SODIUM 5,000 UNITS IN DEXTROSE 5% [Suspect]
     Route: 041
     Dates: start: 20071007, end: 20071007
  76. HEPARIN SODIUM 5,000 UNITS IN DEXTROSE 5% [Suspect]
     Route: 041
     Dates: start: 20071008, end: 20071008
  77. HEPARIN SODIUM 5,000 UNITS IN DEXTROSE 5% [Suspect]
     Route: 041
     Dates: start: 20071009, end: 20071009
  78. HEPARIN SODIUM 5,000 UNITS IN DEXTROSE 5% [Suspect]
     Route: 041
     Dates: start: 20071013, end: 20071013
  79. HEPARIN SODIUM 5,000 UNITS IN DEXTROSE 5% [Suspect]
     Route: 041
     Dates: start: 20071013, end: 20071013
  80. ASCORBIC ACID [Concomitant]
     Indication: PRODUCT USED FOR UNKNOWN INDICATION
     Route: 065
  81. PANTOPRAZOLE [Concomitant]
     Indication: PRODUCT USED FOR UNKNOWN INDICATION
     Route: 065
  82. HEPARIN SODIUM INJECTION [Suspect]
     Indication: MESENTERIC VEIN THROMBOSIS
     Route: 040
     Dates: start: 20071011, end: 20071011
  83. HEPARIN SODIUM INJECTION [Suspect]
     Route: 040
     Dates: start: 20071012, end: 20071012
  84. HEPARIN SODIUM INJECTION [Suspect]
     Route: 040
     Dates: start: 20071012, end: 20071012
  85. HEPARIN SODIUM INJECTION [Suspect]
     Route: 040
     Dates: start: 20071011, end: 20071014
  86. HEPARIN SODIUM INJECTION [Suspect]
     Route: 040
     Dates: start: 20071011, end: 20071014
  87. HEPARIN SODIUM INJECTION [Suspect]
     Route: 040
     Dates: start: 20071013, end: 20071013
  88. HEPARIN SODIUM INJECTION [Suspect]
     Route: 040
     Dates: start: 20071013, end: 20071013
  89. HEPARIN SODIUM 5,000 UNITS IN DEXTROSE 5% [Suspect]
     Route: 041
     Dates: start: 20071009, end: 20071009
  90. HEPARIN SODIUM 5,000 UNITS IN DEXTROSE 5% [Suspect]
     Route: 041
     Dates: start: 20071009, end: 20071010
  91. HEPARIN SODIUM INJECTION [Suspect]
     Route: 042
     Dates: start: 20070928, end: 20071026
  92. XANAX [Concomitant]
     Indication: PRODUCT USED FOR UNKNOWN INDICATION
     Route: 065

REACTIONS (14)
  - HEPATIC CIRRHOSIS [None]
  - RESPIRATORY FAILURE [None]
  - HEPATORENAL SYNDROME [None]
  - HEPATIC FAILURE [None]
  - JAUNDICE [None]
  - BLOOD PRESSURE DECREASED [None]
  - ERYTHEMA [None]
  - SWELLING [None]
  - DYSPNOEA [None]
  - CARDIAC DISORDER [None]
  - FUNCTIONAL GASTROINTESTINAL DISORDER [None]
  - ABDOMINAL PAIN [None]
  - ABDOMINAL COMPARTMENT SYNDROME [None]
  - ORGAN FAILURE [None]
